FAERS Safety Report 8592622-1 (Version None)
Quarter: 2012Q3

REPORT INFORMATION
  Report Type: 
  Country: None (occurrence: None)
  Receive Date: 20120814
  Receipt Date: 20120806
  Transmission Date: 20120928
  Serious: Yes (Hospitalization)
  Sender: FDA-Public Use
  Company Number: US-ACTELION-A-US2012-68609

PATIENT
  Age: 56 Year
  Sex: Female

DRUGS (8)
  1. EPOPROSTENOL SODIUM [Suspect]
     Indication: HEART DISEASE CONGENITAL
     Dosage: 33 NG/KG, PER MIN
     Route: 042
     Dates: start: 20110124
  2. REVATIO [Concomitant]
  3. LASIX [Concomitant]
  4. LISINOPRIL [Concomitant]
  5. ASPIRIN [Concomitant]
  6. LANOXIN [Concomitant]
  7. TRACLEER [Suspect]
     Indication: PULMONARY ARTERIAL HYPERTENSION
     Dosage: UNK
     Route: 048
  8. HEPARIN [Concomitant]

REACTIONS (7)
  - DYSPNOEA [None]
  - FLUID OVERLOAD [None]
  - MALAISE [None]
  - RIGHT VENTRICULAR FAILURE [None]
  - CATHETER PLACEMENT [None]
  - RENAL FAILURE [None]
  - OXYGEN SATURATION DECREASED [None]
